FAERS Safety Report 10196863 (Version 1)
Quarter: 2014Q2

REPORT INFORMATION
  Report Type: Spontaneous
  Country: US (occurrence: US)
  Receive Date: 20140527
  Receipt Date: 20140527
  Transmission Date: 20141212
  Serious: No
  Sender: FDA-Public Use
  Company Number: US-B.I. PHARMACEUTICALS,INC./RIDGEFIELD-2014-BI-21760BP

PATIENT
  Age: 68 Year
  Sex: Female
  Weight: 61 kg

DRUGS (7)
  1. COMBIVENT [Suspect]
     Indication: ASTHMA
     Dosage: STRENGTH: 20 MCG / 100 MCG; DAILY DOSE: 160 MCG/ 800 MCG
     Route: 055
     Dates: start: 201310
  2. SPIRIVA [Suspect]
     Indication: ASTHMA
     Dosage: 18 MCG
     Route: 055
     Dates: start: 201403
  3. TEYLENOL [Concomitant]
     Indication: BACK PAIN
     Route: 048
  4. BACLOFEN [Concomitant]
     Indication: BACK PAIN
     Dosage: 30 MG
     Route: 048
  5. GABAPENTIN [Concomitant]
     Indication: NEURALGIA
     Dosage: 2400 MG
     Route: 048
  6. XANAX [Concomitant]
     Indication: SLEEP DISORDER
     Dosage: 0.25 MG
     Route: 048
  7. ADVAIR [Concomitant]
     Indication: ASTHMA
     Dosage: STRENGTH: 500/ 50 MCG; DAILY DOSE: 1000/ 100 MCG
     Route: 055

REACTIONS (4)
  - Dyspnoea [Not Recovered/Not Resolved]
  - Prescribed overdose [Recovered/Resolved]
  - Off label use [Not Recovered/Not Resolved]
  - Off label use [Not Recovered/Not Resolved]
